FAERS Safety Report 13060151 (Version 1)
Quarter: 2016Q4

REPORT INFORMATION
  Report Type: Spontaneous
  Country: GB (occurrence: GB)
  Receive Date: 20161223
  Receipt Date: 20161223
  Transmission Date: 20170207
  Serious: Yes (Other)
  Sender: FDA-Public Use
  Company Number: GB-BAUSCH-BL-2016-032253

PATIENT
  Age: 40 Year
  Sex: Male
  Weight: 78 kg

DRUGS (2)
  1. OMEPRAZOLE. [Suspect]
     Active Substance: OMEPRAZOLE
     Indication: PRODUCT USED FOR UNKNOWN INDICATION
     Route: 065
  2. FLUORESCEIN [Suspect]
     Active Substance: FLUORESCEIN
     Indication: ANGIOGRAM
     Route: 051
     Dates: start: 20161208, end: 20161208

REACTIONS (2)
  - Diarrhoea [Recovering/Resolving]
  - Influenza like illness [Recovering/Resolving]

NARRATIVE: CASE EVENT DATE: 20161208
